FAERS Safety Report 5597271-5 (Version None)
Quarter: 2007Q4

REPORT INFORMATION
  Report Type: 
  Country: None (occurrence: None)
  Receive Date: 20071221
  Receipt Date: 20071106
  Transmission Date: 20080405
  Serious: No
  Sender: FDA-Public Use
  Company Number: SPV1-2007-04843

PATIENT
  Age: 31 Year
  Sex: Female
  Weight: 99.8 kg

DRUGS (6)
  1. VYVANSE [Suspect]
     Dosage: 70 MG, 1X/DAY:QD, ORAL
     Route: 048
     Dates: start: 20071105
  2. LAMICTAL [Concomitant]
  3. ATIVAN [Concomitant]
  4. AMITRIPTYLINE HCL [Concomitant]
  5. TOPAMAX [Concomitant]
  6. PROVIGIL [Concomitant]

REACTIONS (3)
  - DYSKINESIA [None]
  - OFF LABEL USE [None]
  - RESTLESSNESS [None]
